FAERS Safety Report 8998122 (Version 1)
Quarter: 2013Q1

REPORT INFORMATION
  Report Type: Spontaneous
  Country: US (occurrence: US)
  Receive Date: 20130104
  Receipt Date: 20130104
  Transmission Date: 20140127
  Serious: No
  Sender: FDA-Public Use
  Company Number: US-PFIZER INC-2013003372

PATIENT
  Sex: Female

DRUGS (3)
  1. LIPITOR [Suspect]
     Dosage: 10 MG, UNK
     Dates: end: 2012
  2. LIPITOR [Suspect]
     Dosage: 10 MG, UNK
     Dates: start: 20130101
  3. BUSPIRONE [Concomitant]
     Dosage: UNK

REACTIONS (1)
  - Muscle spasms [Unknown]
